FAERS Safety Report 12404781 (Version 2)
Quarter: 2016Q2

REPORT INFORMATION
  Report Type: Spontaneous
  Country: IT (occurrence: IT)
  Receive Date: 20160525
  Receipt Date: 20160531
  Transmission Date: 20160815
  Serious: Yes (Hospitalization)
  Sender: FDA-Public Use
  Company Number: IT-JNJFOC-20160518788

PATIENT
  Age: 62 Year
  Sex: Male
  Weight: 81 kg

DRUGS (2)
  1. REMICADE [Suspect]
     Active Substance: INFLIXIMAB
     Indication: ERYTHRODERMIC PSORIASIS
     Route: 042
     Dates: start: 20150506
  2. REMICADE [Suspect]
     Active Substance: INFLIXIMAB
     Indication: ERYTHRODERMIC PSORIASIS
     Route: 042
     Dates: start: 20160310, end: 20160310

REACTIONS (3)
  - Pneumonia legionella [Recovered/Resolved]
  - Product use issue [Unknown]
  - Off label use [Unknown]

NARRATIVE: CASE EVENT DATE: 20150506
